FAERS Safety Report 9096444 (Version 2)
Quarter: 2013Q1

REPORT INFORMATION
  Report Type: Spontaneous
  Country: FR (occurrence: None)
  Receive Date: 20130124
  Receipt Date: 20130308
  Transmission Date: 20140127
  Serious: Yes (Other)
  Sender: FDA-Public Use
  Company Number: DSM-2013-00072

PATIENT
  Age: 67 Year
  Sex: Male
  Weight: 74 kg

DRUGS (4)
  1. ALTEIS (OLMESARTAN MEDOXOMIL) (TABLET) (OLMESARTAN MEDOXOMIL) [Suspect]
     Indication: HYPERTENSION
     Route: 048
     Dates: start: 20120719, end: 20120919
  2. PLAVIX (CLOPIDOGREL) (TABLET) (CLOPIDOGREL) [Concomitant]
  3. PRAVASTATIN (PRAVASTATIN) (TABLET) (PRAVASTATIN) [Concomitant]
  4. LANZOR (LANSOPRAZOLE) (CAPSULE) (LANSOPRAZOLE) [Concomitant]

REACTIONS (2)
  - Laryngeal dyspnoea [None]
  - Laryngospasm [None]
